FAERS Safety Report 7021095-5 (Version None)
Quarter: 2010Q3

REPORT INFORMATION
  Report Type: 
  Country: None (occurrence: None)
  Receive Date: 20100929
  Receipt Date: 20100928
  Transmission Date: 20110219
  Serious: Yes (Hospitalization)
  Sender: FDA-Public Use
  Company Number: FR-WYE-G06732210

PATIENT
  Age: 43 Year
  Sex: Male

DRUGS (1)
  1. ADVIL LIQUI-GELS [Suspect]
     Indication: OROPHARYNGEAL PAIN
     Dosage: UNKNOWN
     Route: 048
     Dates: start: 20100626, end: 20100628

REACTIONS (1)
  - CELLULITIS [None]
